FAERS Safety Report 7377856-6 (Version None)
Quarter: 2011Q1

REPORT INFORMATION
  Report Type: 
  Country: None (occurrence: None)
  Receive Date: 20110328
  Receipt Date: 20110321
  Transmission Date: 20110831
  Serious: Yes (Life-Threatening, Hospitalization)
  Sender: FDA-Public Use
  Company Number: PL-AMGEN-UK357767

PATIENT
  Age: 49 Year
  Sex: Female

DRUGS (8)
  1. IPP [Concomitant]
     Dosage: 20 MG, QD
     Route: 048
  2. ACIDUM FOLICUM [Concomitant]
     Dosage: 1.5 MG, QD
     Route: 048
     Dates: start: 20090421, end: 20090614
  3. TRITACE [Concomitant]
     Dosage: 2.5 MG, QD
     Route: 048
     Dates: start: 20081020
  4. HEMOFER [Concomitant]
     Dosage: 210 MG, BID
     Route: 048
     Dates: start: 20090421, end: 20090614
  5. ROMIPLOSTIM [Suspect]
     Indication: IDIOPATHIC THROMBOCYTOPENIC PURPURA
     Dosage: 6 A?G/KG, QWK
     Route: 058
     Dates: start: 20090426, end: 20090726
  6. CYCLONAMINE [Concomitant]
     Dosage: 500 MG, TID
     Route: 048
     Dates: start: 20090421, end: 20090510
  7. TERTENSIF [Concomitant]
     Dosage: 1.5 MG, QD
     Route: 048
     Dates: start: 20081020
  8. TRANEXAMIC ACID [Concomitant]
     Dosage: 500 MG, BID
     Route: 048
     Dates: start: 20090421, end: 20090510

REACTIONS (3)
  - BONE MARROW RETICULIN FIBROSIS [None]
  - BLOOD SMEAR TEST ABNORMAL [None]
  - MYELOFIBROSIS [None]
